FAERS Safety Report 5407914-4 (Version None)
Quarter: 2007Q3

REPORT INFORMATION
  Report Type: 
  Country: None (occurrence: None)
  Receive Date: 20070803
  Receipt Date: 20070720
  Transmission Date: 20080115
  Serious: Yes (Hospitalization)
  Sender: FDA-Public Use
  Company Number: 016533

PATIENT
  Age: 36 Year
  Sex: Female

DRUGS (1)
  1. METHOTREXATE [Suspect]
     Indication: PSORIASIS
     Dosage: 7.5 MG, 2/WEEK

REACTIONS (9)
  - ABDOMINAL TENDERNESS [None]
  - ASPARTATE AMINOTRANSFERASE ABNORMAL [None]
  - BLOOD ALKALINE PHOSPHATASE INCREASED [None]
  - BONE MARROW GRANULOMA [None]
  - DIZZINESS POSTURAL [None]
  - HAEMOGLOBIN DECREASED [None]
  - HISTOPLASMOSIS DISSEMINATED [None]
  - INFECTION IN AN IMMUNOCOMPROMISED HOST [None]
  - LUNG INFILTRATION [None]
